FAERS Safety Report 9712324 (Version 2)
Quarter: 2014Q2

REPORT INFORMATION
  Report Type: Spontaneous
  Country: US (occurrence: US)
  Receive Date: 20131126
  Receipt Date: 20140510
  Transmission Date: 20141212
  Serious: No
  Sender: FDA-Public Use
  Company Number: US-BRISTOL-MYERS SQUIBB COMPANY-19159870

PATIENT
  Age: 66 Year
  Sex: Male

DRUGS (3)
  1. BYDUREON [Suspect]
     Dosage: LOT NO:73483 EXPDT:APR16
     Route: 058
     Dates: start: 2013
  2. METFORMIN HCL [Suspect]
  3. LANTUS [Suspect]

REACTIONS (2)
  - Hyperglycaemia [Unknown]
  - Injection site swelling [Not Recovered/Not Resolved]
